FAERS Safety Report 4763069-0 (Version None)
Quarter: 2005Q3

REPORT INFORMATION
  Report Type: 
  Country: None (occurrence: None)
  Receive Date: 20050826
  Receipt Date: 20041109
  Transmission Date: 20060218
  Serious: Yes (Death)
  Sender: FDA-Public Use
  Company Number: USA-2004-0017596

PATIENT
  Age: 26 Year
  Sex: Female
  Weight: 92.3 kg

DRUGS (5)
  1. OXYCODONE HCL [Suspect]
  2. FLUOXETINE [Suspect]
  3. RISPERIDONE [Suspect]
  4. METOPROLOL TARTRATE [Suspect]
  5. MIRTAZAPINE [Suspect]

REACTIONS (2)
  - ACCIDENTAL OVERDOSE [None]
  - MULTIPLE DRUG OVERDOSE [None]
